FAERS Safety Report 8845176 (Version 2)
Quarter: 2012Q4

REPORT INFORMATION
  Report Type: 
  Country: US (occurrence: None)
  Receive Date: 20121011
  Receipt Date: 20121129
  Transmission Date: 20130627
  Serious: Yes (Hospitalization)
  Sender: FDA-Public Use
  Company Number: 2012PROUSA02073

PATIENT
  Age: 84 Year
  Sex: Male
  Weight: 97.2 kg

DRUGS (4)
  1. PROVENGE (SIPULEUCEL-T) SUSPENSION, 250ML [Suspect]
     Indication: PROSTATE CANCER METASTATIC
     Route: 042
     Dates: start: 20120914, end: 20120914
  2. PROVENGE (SIPULEUCEL-T) SUSPENSION, 250ML [Suspect]
     Indication: PROSTATE CANCER METASTATIC
     Route: 042
     Dates: start: 20120928, end: 20120928
  3. TOPROL (METOPROLOL SUCCINATE) [Concomitant]
  4. PREVACID (LANSOPRAZOLE) [Concomitant]

REACTIONS (3)
  - Tachycardia [None]
  - Hypertension [None]
  - Chills [None]
